FAERS Safety Report 5549561-X (Version None)
Quarter: 2007Q4

REPORT INFORMATION
  Report Type: 
  Country: None (occurrence: None)
  Receive Date: 20071210
  Receipt Date: 20071130
  Transmission Date: 20080405
  Serious: Yes (Death, Hospitalization)
  Sender: FDA-Public Use
  Company Number: 2007BI009497

PATIENT
  Age: 63 Year
  Sex: Female

DRUGS (5)
  1. NATALIZUMAB [Suspect]
     Indication: MULTIPLE SCLEROSIS
     Dosage: 300 MG; QM; IV
     Route: 042
     Dates: start: 20061229, end: 20070516
  2. LEVOXYL [Concomitant]
  3. BONIVA [Concomitant]
  4. AMBIEN [Concomitant]
  5. NOVANTRONE [Concomitant]

REACTIONS (5)
  - MULTIPLE SCLEROSIS RELAPSE [None]
  - NEUROMYELITIS OPTICA [None]
  - NO THERAPEUTIC RESPONSE [None]
  - PNEUMONIA [None]
  - URINARY TRACT INFECTION [None]
